FAERS Safety Report 24524243 (Version 3)
Quarter: 2025Q3

REPORT INFORMATION
  Report Type: Spontaneous
  Country: JP (occurrence: JP)
  Receive Date: 20241018
  Receipt Date: 20250809
  Transmission Date: 20251021
  Serious: Yes (Other)
  Sender: ALEXION PHARMACEUTICALS
  Company Number: JP-ASTRAZENECA-240094917_064320_P_1

PATIENT
  Age: 55 Year
  Sex: Male

DRUGS (3)
  1. ONDEXXYA [Suspect]
     Active Substance: ANDEXANET ALFA
     Indication: Atrial fibrillation
     Dates: start: 20230516, end: 20230516
  2. EDOXABAN TOSYLATE [Concomitant]
     Active Substance: EDOXABAN TOSYLATE
     Indication: Atrial fibrillation
  3. HEPARINOID [Concomitant]
     Indication: Atrial fibrillation

REACTIONS (1)
  - Heparin resistance [Recovered/Resolved]

NARRATIVE: CASE EVENT DATE: 20230516
